FAERS Safety Report 7475466-3 (Version None)
Quarter: 2011Q2

REPORT INFORMATION
  Report Type: 
  Country: None (occurrence: None)
  Receive Date: 20110512
  Receipt Date: 20110428
  Transmission Date: 20111010
  Serious: Yes (Hospitalization)
  Sender: FDA-Public Use
  Company Number: PHHY2011FR38681

PATIENT
  Sex: Male

DRUGS (13)
  1. EUPRESSYL [Suspect]
     Dosage: 1 DF DAILY
     Route: 048
     Dates: end: 20110323
  2. ACETAMINOPHEN [Suspect]
     Dosage: UNK
     Route: 048
     Dates: end: 20110323
  3. GLICLAZIDE [Concomitant]
     Dosage: UNK
     Route: 048
     Dates: end: 20110101
  4. METFORMIN HCL [Suspect]
     Dosage: 3 DF DAILY
     Route: 048
     Dates: end: 20110323
  5. XELEVIA [Concomitant]
     Dosage: UNK
     Route: 048
     Dates: end: 20110101
  6. LERCANIDIPINE [Suspect]
     Dosage: 1 DF DAILY
     Route: 048
     Dates: end: 20110323
  7. VALSARTAN  AND HYDROCHLOROTHIAZIDE [Suspect]
     Dosage: 1 DF, (ONE TABLET DAILY)
     Route: 048
     Dates: end: 20110323
  8. PRETERAX [Concomitant]
     Dosage: UNK
     Route: 048
     Dates: end: 20110101
  9. SIMVASTATIN [Concomitant]
     Route: 048
  10. ALFUZOSIN HYDROCHLORIDE [Concomitant]
     Route: 048
  11. PREDNISONE [Concomitant]
     Dosage: 1 DF, UNK
  12. ASPIRIN [Concomitant]
     Dosage: 1 DF, UNK
     Route: 048
  13. ACEBUTOLOL [Concomitant]
     Dosage: 200 MG, UNK
     Route: 048

REACTIONS (12)
  - RASH [None]
  - IMPETIGO [None]
  - ECZEMA [None]
  - LYMPHADENOPATHY [None]
  - INSOMNIA [None]
  - PRURITUS [None]
  - PAPULE [None]
  - EOSINOPHILIA [None]
  - SKIN LESION [None]
  - ERYTHEMA [None]
  - OEDEMA PERIPHERAL [None]
  - SCAB [None]
